FAERS Safety Report 9969658 (Version 1)
Quarter: 2014Q1

REPORT INFORMATION
  Report Type: Spontaneous
  Country: US (occurrence: None)
  Receive Date: 20140130
  Receipt Date: 20140130
  Transmission Date: 20141002
  Serious: No
  Sender: FDA-Public Use
  Company Number: PHEH2013US021803

PATIENT
  Age: 73 Year
  Sex: Female

DRUGS (1)
  1. ARCAPTA (INDACATEROL) UNKNOWN [Suspect]

REACTIONS (5)
  - Abdominal discomfort [None]
  - Dyspepsia [None]
  - Ulcer [None]
  - Dyspnoea [None]
  - Nausea [None]
